FAERS Safety Report 5055517-6 (Version None)
Quarter: 2006Q3

REPORT INFORMATION
  Report Type: 
  Country: None (occurrence: None)
  Receive Date: 20060719
  Receipt Date: 20041026
  Transmission Date: 20061208
  Serious: Yes (Hospitalization, Disabling, Other)
  Sender: FDA-Public Use
  Company Number: US-MERCK-0410USA04001

PATIENT
  Age: 59 Year
  Sex: Female

DRUGS (5)
  1. FOSAMAX [Suspect]
     Indication: OSTEOPENIA
     Route: 048
     Dates: end: 20040101
  2. OXYCONTIN [Concomitant]
     Indication: PAIN
     Route: 048
  3. OXYCODONE [Concomitant]
     Indication: PAIN
     Route: 048
  4. NEURONTIN [Concomitant]
     Indication: PAIN
     Route: 048
  5. VIOXX [Concomitant]
     Route: 048

REACTIONS (15)
  - ANAEMIA [None]
  - ARTHRALGIA [None]
  - BLADDER DISORDER [None]
  - BODY HEIGHT DECREASED [None]
  - CLOSTRIDIUM DIFFICILE COLITIS [None]
  - CROHN'S DISEASE [None]
  - GASTROINTESTINAL HAEMORRHAGE [None]
  - OESOPHAGEAL CANDIDIASIS [None]
  - OSTEOMYELITIS [None]
  - OSTEONECROSIS [None]
  - PAIN IN EXTREMITY [None]
  - SICCA SYNDROME [None]
  - SYNCOPE [None]
  - TEMPOROMANDIBULAR JOINT SYNDROME [None]
  - TOOTH ABSCESS [None]
